FAERS Safety Report 13046078 (Version 1)
Quarter: 2016Q4

REPORT INFORMATION
  Report Type: Spontaneous
  Country: US (occurrence: US)
  Receive Date: 20161220
  Receipt Date: 20161220
  Transmission Date: 20170207
  Serious: No
  Sender: FDA-Public Use
  Company Number: US-009507513-1611USA013921

PATIENT
  Sex: Male

DRUGS (1)
  1. PRINIVIL [Suspect]
     Active Substance: LISINOPRIL
     Dosage: 25 MG, 1 TABLET EVERY TWO DAYS
     Route: 048

REACTIONS (2)
  - Cough [Unknown]
  - Drug hypersensitivity [Unknown]
